FAERS Safety Report 4369199-X (Version None)
Quarter: 2004Q2

REPORT INFORMATION
  Report Type: 
  Country: None (occurrence: None)
  Receive Date: 20040601
  Receipt Date: 20040601
  Transmission Date: 20050107
  Serious: Yes (Life-Threatening, Hospitalization)
  Sender: FDA-Public Use
  Company Number: None

PATIENT
  Age: 73 Year
  Sex: Male
  Weight: 86.1834 kg

DRUGS (10)
  1. FLUOROURACIL [Suspect]
     Indication: RECTAL CANCER
     Dosage: 500 MG/M2 = 990 MG IVF
     Route: 042
     Dates: start: 20040428
  2. FLUOROURACIL [Suspect]
     Indication: RECTAL CANCER
     Dosage: 500 MG/M2 = 990 MG IVF
     Route: 042
     Dates: start: 20040505
  3. FLUOROURACIL [Suspect]
     Indication: RECTAL CANCER
     Dosage: 500 MG/M2 = 990 MG IVF
     Route: 042
     Dates: start: 20040512
  4. FLUOROURACIL [Suspect]
     Indication: RECTAL CANCER
     Dosage: 500 MG/M2 = 990 MG IVF
     Route: 042
     Dates: start: 20040519
  5. LEUCOVORIN [Suspect]
     Dosage: 500 MG/M2 = 990 MG IV
     Route: 042
     Dates: start: 20040428
  6. LEUCOVORIN [Suspect]
     Dosage: 500 MG/M2 = 990 MG IV
     Route: 042
     Dates: start: 20040505
  7. LEUCOVORIN [Suspect]
     Dosage: 500 MG/M2 = 990 MG IV
     Route: 042
     Dates: start: 20040512
  8. LEUCOVORIN [Suspect]
     Dosage: 500 MG/M2 = 990 MG IV
     Route: 042
     Dates: start: 20040519
  9. IMODIUM [Concomitant]
  10. COMPAZINE [Concomitant]

REACTIONS (3)
  - NAUSEA [None]
  - RESPIRATORY DISTRESS [None]
  - VOMITING [None]
